FAERS Safety Report 23467425 (Version 2)
Quarter: 2024Q1

REPORT INFORMATION
  Report Type: Report from Study
  Country: CA (occurrence: CA)
  Receive Date: 20240201
  Receipt Date: 20240209
  Transmission Date: 20240410
  Serious: Yes (Hospitalization, Other)
  Sender: FDA-Public Use
  Company Number: CA-002147023-NVSC2021CA210543

PATIENT
  Age: 75 Year
  Sex: Female

DRUGS (3)
  1. HYRIMOZ [Suspect]
     Active Substance: ADALIMUMAB-ADAZ
     Indication: Psoriasis
     Dosage: 40 MG, QW
     Route: 058
     Dates: start: 20210822
  2. DILAUDID [Concomitant]
     Active Substance: HYDROMORPHONE HYDROCHLORIDE
     Indication: Palliative care
     Dosage: UNK
     Route: 048
  3. KENALOG [Concomitant]
     Active Substance: TRIAMCINOLONE ACETONIDE
     Indication: Pain
     Dosage: UNK
     Route: 042

REACTIONS (11)
  - Respiratory tract congestion [Unknown]
  - Oxygen saturation abnormal [Unknown]
  - Lung carcinoma cell type unspecified stage IV [Unknown]
  - Illness [Unknown]
  - Diarrhoea [Unknown]
  - Pain in extremity [Unknown]
  - Back pain [Unknown]
  - Product dose omission issue [Unknown]
  - Inappropriate schedule of product administration [Unknown]
  - Device deployment issue [Unknown]
  - Off label use [Unknown]

NARRATIVE: CASE EVENT DATE: 20210901
